FAERS Safety Report 8579582-4 (Version None)
Quarter: 2012Q3

REPORT INFORMATION
  Report Type: 
  Country: None (occurrence: None)
  Receive Date: 20120808
  Receipt Date: 20120731
  Transmission Date: 20120928
  Serious: Yes (Other)
  Sender: FDA-Public Use
  Company Number: CA-JNJFOC-20120801941

PATIENT
  Sex: Female

DRUGS (2)
  1. DOXORUBICIN HYDROCHLORIDE [Suspect]
     Indication: OVARIAN CANCER RECURRENT
     Route: 042
  2. CARBOPLATIN [Suspect]
     Indication: OVARIAN CANCER RECURRENT
     Route: 065

REACTIONS (2)
  - NEUROPATHY PERIPHERAL [None]
  - ADVERSE DRUG REACTION [None]
